FAERS Safety Report 6198831-3 (Version None)
Quarter: 2009Q2

REPORT INFORMATION
  Report Type: 
  Country: None (occurrence: None)
  Receive Date: 20090522
  Receipt Date: 20090512
  Transmission Date: 20091009
  Serious: Yes (Hospitalization)
  Sender: FDA-Public Use
  Company Number: US-RANBAXY-2007RR-10914

PATIENT
  Age: 65 Year
  Sex: Male

DRUGS (10)
  1. CIPROFLOXACIN [Suspect]
     Indication: CELLULITIS
     Dosage: 500 MG, BID
  2. LISINOPRIL [Concomitant]
  3. WARFARIN SODIUM [Concomitant]
  4. SIMVASTATIN [Concomitant]
  5. NIACIN [Concomitant]
  6. FUROSEMIDE [Concomitant]
     Dosage: 20 MG, UNK
     Route: 030
  7. FUROSEMIDE [Concomitant]
     Dosage: 40 MG, UNK
  8. METOPROLOL SUCCINATE [Concomitant]
  9. FOLIC ACID [Concomitant]
  10. POTASSIUM CHLORIDE [Concomitant]

REACTIONS (3)
  - CHOLESTATIC LIVER INJURY [None]
  - RENAL FAILURE [None]
  - RENAL TUBULAR NECROSIS [None]
